FAERS Safety Report 4895935-X (Version None)
Quarter: 2005Q4

REPORT INFORMATION
  Report Type: 
  Country: None (occurrence: None)
  Receive Date: 20051220
  Receipt Date: 20050222
  Transmission Date: 20060501
  Serious: Yes (Other)
  Sender: FDA-Public Use
  Company Number: US116192

PATIENT
  Age: 64 Year
  Sex: Female
  Weight: 68.1 kg

DRUGS (9)
  1. ENBREL [Suspect]
     Indication: PSORIASIS
     Dosage: 50 MG, 1 IN 1  WEEKS, SC
     Route: 058
     Dates: start: 20040903
  2. PROTOPIC [Suspect]
     Dates: start: 20040421, end: 20041004
  3. ACETYLSALICYLIC ACID SRT [Concomitant]
  4. EZETIMIBE [Concomitant]
  5. ESOMEPRAZOLE MAGNESIUM [Concomitant]
  6. FEXOFENADINE HYDROCHLORIDE [Concomitant]
  7. MULTIVITAMIN [Concomitant]
  8. PIOGLITAZONE HCL [Concomitant]
  9. HALOBETASOL PROPRIONATE [Concomitant]

REACTIONS (1)
  - BASAL CELL CARCINOMA [None]
